FAERS Safety Report 6634565-6 (Version None)
Quarter: 2010Q1

REPORT INFORMATION
  Report Type: 
  Country: None (occurrence: None)
  Receive Date: 20100312
  Receipt Date: 20100312
  Transmission Date: 20100710
  Serious: Yes (Other)
  Sender: FDA-Public Use
  Company Number: None

PATIENT
  Age: 10 Year
  Sex: Male

DRUGS (4)
  1. ABILIFY [Suspect]
     Indication: PARANOIA
     Dosage: 15 MG DAILY EVENING
     Dates: start: 20091016
  2. ABILIFY [Suspect]
     Indication: SCHIZOPHRENIA
     Dosage: 15 MG DAILY EVENING
     Dates: start: 20091016
  3. ABILIFY [Suspect]
     Indication: PARANOIA
     Dosage: 15 MG DAILY EVENING
     Dates: start: 20100206
  4. ABILIFY [Suspect]
     Indication: SCHIZOPHRENIA
     Dosage: 15 MG DAILY EVENING
     Dates: start: 20100206

REACTIONS (2)
  - SPEECH DISORDER [None]
  - SWELLING [None]
